FAERS Safety Report 10733262 (Version 2)
Quarter: 2015Q1

REPORT INFORMATION
  Report Type: Spontaneous
  Country: AT (occurrence: None)
  Receive Date: 20150120
  Receipt Date: 20150211
  Transmission Date: 20150721
  Serious: Yes (Hospitalization)
  Sender: FDA-Public Use
  Company Number: FK201500198

PATIENT
  Age: 63 Year
  Sex: Male

DRUGS (4)
  1. CYCLOPHOSPHAMIDE (CYCLOPHOSPHAMIDE) [Suspect]
     Active Substance: CYCLOPHOSPHAMIDE
     Indication: CHRONIC LYMPHOCYTIC LEUKAEMIA
     Dosage: 4 CYCLES?
     Dates: start: 200112
  2. RITUXIMAB (RITUXIMAB) [Suspect]
     Active Substance: RITUXIMAB
     Indication: CHRONIC LYMPHOCYTIC LEUKAEMIA
     Dosage: 3 CYCLES?
     Dates: start: 1999
  3. LENALIDOMIDE [Concomitant]
     Active Substance: LENALIDOMIDE
  4. FLUDARABINE [Suspect]
     Active Substance: FLUDARABINE PHOSPHATE
     Indication: CHRONIC LYMPHOCYTIC LEUKAEMIA
     Dosage: 5 CYCLES AND THEN 3 CYCLES?
     Dates: start: 1999

REACTIONS (7)
  - Progressive multifocal leukoencephalopathy [None]
  - Pneumonia viral [None]
  - Clostridial infection [None]
  - Pneumonia aspiration [None]
  - Pseudomonas infection [None]
  - Sepsis [None]
  - Autoimmune haemolytic anaemia [None]
